FAERS Safety Report 9491987 (Version 2)
Quarter: 2013Q4

REPORT INFORMATION
  Report Type: Spontaneous
  Country: PL (occurrence: PL)
  Receive Date: 20130830
  Receipt Date: 20131011
  Transmission Date: 20140711
  Serious: Yes (Hospitalization, Other)
  Sender: FDA-Public Use
  Company Number: PL-AMGEN-POLSP2013060752

PATIENT
  Age: 78 Year
  Sex: Female
  Weight: 52.5 kg

DRUGS (5)
  1. PROLIA [Suspect]
     Indication: OSTEOPOROTIC FRACTURE
     Dosage: 60 MG, Q6MO
     Route: 058
     Dates: start: 201301
  2. CARVEDILOL [Concomitant]
     Dosage: 6.25 MG, QD
     Route: 048
  3. TIALORID                           /00206601/ [Concomitant]
     Dosage: UNK UNK, QD
     Route: 048
  4. VASILIP [Concomitant]
     Indication: HYPERTENSION
     Dosage: 10 MUG, UNK
     Route: 048
  5. ACARD [Concomitant]
     Dosage: UNK
     Route: 048

REACTIONS (1)
  - Pancreatitis acute [Recovered/Resolved]
